APPROVED DRUG PRODUCT: CLOBETASOL PROPIONATE
Active Ingredient: CLOBETASOL PROPIONATE
Strength: 0.05%
Dosage Form/Route: SOLUTION;TOPICAL
Application: A210190 | Product #001
Applicant: GLENMARK PHARMACEUTICALS LTD
Approved: Apr 18, 2018 | RLD: No | RS: No | Type: DISCN